FAERS Safety Report 4598988-1 (Version None)
Quarter: 2005Q1

REPORT INFORMATION
  Report Type: 
  Country: None (occurrence: None)
  Receive Date: 20050304
  Receipt Date: 20000112
  Transmission Date: 20050727
  Serious: Yes (Life-Threatening, Disabling)
  Sender: FDA-Public Use
  Company Number: US-MERCK-00010882

PATIENT
  Age: 67 Year
  Sex: Female

DRUGS (5)
  1. VIOXX [Suspect]
     Indication: ARTHRALGIA
     Route: 048
     Dates: start: 19991201, end: 19991201
  2. VIOXX [Suspect]
     Route: 048
     Dates: start: 20020601, end: 20040201
  3. VIOXX [Suspect]
     Indication: NERVE INJURY
     Route: 048
     Dates: start: 19991201, end: 19991201
  4. VIOXX [Suspect]
     Route: 048
     Dates: start: 20020601, end: 20040201
  5. PREMARIN [Concomitant]
     Route: 065

REACTIONS (3)
  - DEAFNESS NEUROSENSORY [None]
  - NERVE INJURY [None]
  - TINNITUS [None]
